FAERS Safety Report 23695453 (Version 1)
Quarter: 2024Q2

REPORT INFORMATION
  Report Type: Spontaneous
  Country: CN (occurrence: CN)
  Receive Date: 20240402
  Receipt Date: 20240402
  Transmission Date: 20240715
  Serious: Yes (Other)
  Sender: FDA-Public Use
  Company Number: CN-Jiangsu Hengrui Medicine Co., Ltd.-2155113

PATIENT
  Sex: Female

DRUGS (5)
  1. CYCLOPHOSPHAMIDE [Suspect]
     Active Substance: CYCLOPHOSPHAMIDE
     Indication: Stem cell transplant
     Route: 041
  2. FLUDARABINE [Suspect]
     Active Substance: FLUDARABINE PHOSPHATE
     Route: 041
  3. CASPOFUNGIN [Concomitant]
     Active Substance: CASPOFUNGIN
  4. GANCICLOVIR [Concomitant]
     Active Substance: GANCICLOVIR
  5. Thymocyte [Concomitant]

REACTIONS (1)
  - Drug-induced liver injury [Recovering/Resolving]
